FAERS Safety Report 20214312 (Version 1)
Quarter: 2021Q4

REPORT INFORMATION
  Report Type: Spontaneous
  Country: US (occurrence: US)
  Receive Date: 20211221
  Receipt Date: 20211221
  Transmission Date: 20220303
  Serious: Yes (Other)
  Sender: FDA-Public Use
  Company Number: US-ALLERGAN-2143242US

PATIENT
  Sex: Female
  Weight: 74.84 kg

DRUGS (1)
  1. NORCO [Suspect]
     Active Substance: ACETAMINOPHEN\HYDROCODONE BITARTRATE
     Indication: Psoriatic arthropathy
     Dosage: 5 TIMES A DAY
     Dates: start: 2011

REACTIONS (3)
  - Breast cancer [Not Recovered/Not Resolved]
  - Drug ineffective [Unknown]
  - Pain [Unknown]
